FAERS Safety Report 11214737 (Version 2)
Quarter: 2015Q3

REPORT INFORMATION
  Report Type: Spontaneous
  Country: US (occurrence: US)
  Receive Date: 20150624
  Receipt Date: 20150804
  Transmission Date: 20151125
  Serious: No
  Sender: FDA-Public Use
  Company Number: US-ASTRAZENECA-2015SE59189

PATIENT
  Sex: Female
  Weight: 77.1 kg

DRUGS (5)
  1. POTASSIUM [Concomitant]
     Active Substance: POTASSIUM
     Indication: BLOOD POTASSIUM DECREASED
     Route: 048
  2. SYMBICORT [Suspect]
     Active Substance: BUDESONIDE\FORMOTEROL FUMARATE DIHYDRATE
     Indication: ASTHMA
     Dosage: SOMETIMES GET ONE PUFF OF MEDICINE, UNKNOWN
     Route: 055
  3. SYMBICORT [Suspect]
     Active Substance: BUDESONIDE\FORMOTEROL FUMARATE DIHYDRATE
     Indication: ASTHMA
     Dosage: DOSE:160 MCG / 4.5 MCG 2 PUFFS, FREQUENCY: TWO TIMES A DAY
     Route: 055
  4. SYMBICORT [Suspect]
     Active Substance: BUDESONIDE\FORMOTEROL FUMARATE DIHYDRATE
     Indication: RHEUMATOID ARTHRITIS
     Dosage: DOSE:160 MCG / 4.5 MCG 2 PUFFS, FREQUENCY: TWO TIMES A DAY
     Route: 055
  5. SYMBICORT [Suspect]
     Active Substance: BUDESONIDE\FORMOTEROL FUMARATE DIHYDRATE
     Indication: RHEUMATOID ARTHRITIS
     Dosage: SOMETIMES GET ONE PUFF OF MEDICINE, UNKNOWN
     Route: 055

REACTIONS (5)
  - Drug dose omission [Unknown]
  - Product use issue [Unknown]
  - Intentional product misuse [Unknown]
  - Blood potassium decreased [Unknown]
  - Device malfunction [Unknown]
